FAERS Safety Report 18442069 (Version 2)
Quarter: 2020Q4

REPORT INFORMATION
  Report Type: Spontaneous
  Country: GB (occurrence: GB)
  Receive Date: 20201029
  Receipt Date: 20201127
  Transmission Date: 20210114
  Serious: Yes (Hospitalization)
  Sender: FDA-Public Use
  Company Number: GB-VERTEX PHARMACEUTICALS-2020-021167

PATIENT
  Sex: Male

DRUGS (8)
  1. PULMOZYME [Concomitant]
     Active Substance: DORNASE ALFA
     Dosage: 2.5 MG, QD
  2. KALYDECO [Suspect]
     Active Substance: IVACAFTOR
     Indication: CYSTIC FIBROSIS
     Dosage: 150 MG, BID (EVERY 12 HOURS AS DIRECTED)
     Route: 048
     Dates: start: 20150205
  3. PREDNISOLONE. [Concomitant]
     Active Substance: PREDNISOLONE
     Dosage: 10 MG, QD
  4. OMEPRAZOLE. [Concomitant]
     Active Substance: OMEPRAZOLE
     Dosage: 20 MG, QD
  5. CHOLECALCIFEROL [Concomitant]
     Active Substance: CHOLECALCIFEROL
     Dosage: 3200 INTERNATIONAL UNIT, QD
  6. AZITHROMYCIN ANHYDROUS. [Concomitant]
     Active Substance: AZITHROMYCIN ANHYDROUS
     Dosage: 500 MG,  (MONDAY, WEDNESDAY AND FRIDAY)
  7. SALBUTAMOL [Concomitant]
     Active Substance: ALBUTEROL
     Dosage: 5 MG, BID
  8. KALYDECO [Suspect]
     Active Substance: IVACAFTOR
     Dosage: 150 MG, QD (ONCE EVERY NIGHT TIME)
     Route: 048

REACTIONS (1)
  - Pneumonia [Recovered/Resolved]

NARRATIVE: CASE EVENT DATE: 20200827
